FAERS Safety Report 23651212 (Version 1)
Quarter: 2024Q1

REPORT INFORMATION
  Report Type: Spontaneous
  Country: US (occurrence: US)
  Receive Date: 20240320
  Receipt Date: 20240320
  Transmission Date: 20240410
  Serious: No
  Sender: FDA-Public Use
  Company Number: US-AUROBINDO-AUR-APL-2023-042451

PATIENT
  Age: 40 Year
  Sex: Male

DRUGS (1)
  1. FLUOXETINE HYDROCHLORIDE [Suspect]
     Active Substance: FLUOXETINE HYDROCHLORIDE
     Indication: Product used for unknown indication
     Dosage: 2 DOSAGE FORM, ONCE A DAY (TOTAL OF 40 MG A DAY)
     Route: 065

REACTIONS (4)
  - Dyspepsia [Unknown]
  - Abdominal distension [Unknown]
  - Abdominal pain upper [Unknown]
  - Frequent bowel movements [Unknown]
